FAERS Safety Report 10146216 (Version 1)
Quarter: 2014Q2

REPORT INFORMATION
  Report Type: Spontaneous
  Country: US (occurrence: US)
  Receive Date: 20140501
  Receipt Date: 20140501
  Transmission Date: 20141212
  Serious: No
  Sender: FDA-Public Use
  Company Number: US-PFIZER INC-2014118903

PATIENT
  Age: 58 Year
  Sex: Male

DRUGS (1)
  1. FLECTOR [Suspect]
     Indication: BACK PAIN
     Dosage: UNK
     Route: 062

REACTIONS (3)
  - Weight increased [Unknown]
  - Dyspepsia [Unknown]
  - Intentional product misuse [Unknown]
